FAERS Safety Report 18003834 (Version 2)
Quarter: 2020Q3

REPORT INFORMATION
  Report Type: Other
  Country: IT (occurrence: IT)
  Receive Date: 20200710
  Receipt Date: 20200729
  Transmission Date: 20201103
  Serious: Yes (Other)
  Sender: FDA-Public Use
  Company Number: IT-ROCHE-2636292

PATIENT
  Age: 48 Year
  Sex: Female
  Weight: 86 kg

DRUGS (2)
  1. TRASTUZUMAB EMTANSINE [Suspect]
     Active Substance: ADO-TRASTUZUMAB EMTANSINE
     Indication: BREAST CANCER
     Route: 042
     Dates: start: 20200203, end: 20200428
  2. EXEMESTANE. [Suspect]
     Active Substance: EXEMESTANE
     Indication: CHEMOTHERAPY
     Route: 048
     Dates: start: 20200203

REACTIONS (1)
  - Metastases to skin [Not Recovered/Not Resolved]

NARRATIVE: CASE EVENT DATE: 20200519
